FAERS Safety Report 8093683-9 (Version None)
Quarter: 2012Q1

REPORT INFORMATION
  Report Type: 
  Country: None (occurrence: None)
  Receive Date: 20120129
  Receipt Date: 20111026
  Transmission Date: 20120608
  Serious: No
  Sender: FDA-Public Use
  Company Number: US-ABBOTT-11P-163-0868583-00

PATIENT
  Age: 34 Year
  Sex: Female

DRUGS (4)
  1. HUMIRA [Suspect]
     Indication: ANKYLOSING SPONDYLITIS
     Dates: start: 20110928
  2. MAXZIDE [Concomitant]
     Indication: BLOOD PRESSURE
     Dosage: 75/50 MG DAILY
  3. VOLTAREN [Concomitant]
     Indication: OSTEOARTHRITIS
     Dates: start: 20060101
  4. SULFASALAZINE [Concomitant]
     Indication: ANKYLOSING SPONDYLITIS
     Dates: start: 20100101

REACTIONS (6)
  - FEELING HOT [None]
  - FEELING ABNORMAL [None]
  - MALAISE [None]
  - PAIN [None]
  - INFLUENZA LIKE ILLNESS [None]
  - OROPHARYNGEAL PAIN [None]
